FAERS Safety Report 9394189 (Version 1)
Quarter: 2013Q3

REPORT INFORMATION
  Report Type: Spontaneous
  Country: FR (occurrence: FR)
  Receive Date: 20130711
  Receipt Date: 20130711
  Transmission Date: 20140515
  Serious: Yes (Other)
  Sender: FDA-Public Use
  Company Number: FR-ABBOTT-13X-056-1115303-00

PATIENT
  Age: 46 Year
  Sex: Male

DRUGS (3)
  1. LIPANTHYL [Suspect]
     Indication: DYSLIPIDAEMIA
     Route: 048
     Dates: start: 20120918, end: 20130215
  2. TOCO [Concomitant]
     Indication: DYSLIPIDAEMIA
     Route: 048
  3. TAHOR [Concomitant]
     Indication: DYSLIPIDAEMIA

REACTIONS (1)
  - Cutaneous lupus erythematosus [Recovering/Resolving]
